FAERS Safety Report 10765917 (Version 1)
Quarter: 2015Q1

REPORT INFORMATION
  Report Type: Spontaneous
  Country: US (occurrence: None)
  Receive Date: 20150204
  Receipt Date: 20150204
  Transmission Date: 20150721
  Serious: Yes (Hospitalization)
  Sender: FDA-Public Use
  Company Number: None

PATIENT
  Age: 76 Year
  Sex: Female
  Weight: 60 kg

DRUGS (12)
  1. TACROLIMUS. [Concomitant]
     Active Substance: TACROLIMUS
  2. LOSARTAN [Suspect]
     Active Substance: LOSARTAN
     Indication: HYPERTENSION
     Dosage: CHRONIC
     Route: 048
  3. KCL [Suspect]
     Active Substance: POTASSIUM CHLORIDE
     Indication: HYPERTENSION
     Dosage: CHRONIC
     Route: 048
  4. CLOBETASOL [Concomitant]
     Active Substance: CLOBETASOL
  5. ASA [Concomitant]
     Active Substance: ASPIRIN
  6. PROPYLTHIOURACIL. [Concomitant]
     Active Substance: PROPYLTHIOURACIL
  7. SPIRONOLACTONE. [Suspect]
     Active Substance: SPIRONOLACTONE
  8. METOPROLOL TARTRATE. [Concomitant]
     Active Substance: METOPROLOL TARTRATE
  9. LASIX [Concomitant]
     Active Substance: FUROSEMIDE
  10. NORVASC [Concomitant]
     Active Substance: AMLODIPINE BESYLATE
  11. FLUOCINONIDE. [Concomitant]
     Active Substance: FLUOCINONIDE
  12. URSODIOL. [Concomitant]
     Active Substance: URSODIOL

REACTIONS (8)
  - Nausea [None]
  - Vomiting [None]
  - Bradycardia [None]
  - Asthenia [None]
  - Hypokalaemia [None]
  - Acute kidney injury [None]
  - Hyperkalaemia [None]
  - Overdose [None]

NARRATIVE: CASE EVENT DATE: 20140501
